FAERS Safety Report 9342142 (Version 3)
Quarter: 2014Q3

REPORT INFORMATION
  Report Type: Spontaneous
  Country: JP (occurrence: JP)
  Receive Date: 20130611
  Receipt Date: 20140923
  Transmission Date: 20150326
  Serious: Yes (Other)
  Sender: FDA-Public Use
  Company Number: JP-PFIZER INC-2013174503

PATIENT
  Age: 37 Year
  Sex: Female
  Weight: 73.6 kg

DRUGS (12)
  1. CISPLATIN. [Suspect]
     Active Substance: CISPLATIN
     Indication: UTERINE CANCER
     Dosage: 50 MG/M2, (85 MG)
     Route: 042
  2. GLUTATHIONE [Concomitant]
     Active Substance: GLUTATHIONE
  3. METOCLOPRAMIDE. [Concomitant]
     Active Substance: METOCLOPRAMIDE
  4. HEPARIN SODIUM. [Concomitant]
     Active Substance: HEPARIN SODIUM
  5. ADRIACIN [Suspect]
     Active Substance: DOXORUBICIN HYDROCHLORIDE
     Indication: UTERINE CANCER
     Dosage: 60 MG/M2, (100 MG)
     Route: 042
  6. FAMOTIDINE. [Suspect]
     Active Substance: FAMOTIDINE
  7. FOSFOMYCIN SODIUM [Concomitant]
     Active Substance: FOSFOMYCIN SODIUM
  8. EMEND [Suspect]
     Active Substance: APREPITANT
     Route: 048
  9. SODIUM BICARBONATE. [Suspect]
     Active Substance: SODIUM BICARBONATE
  10. GRANISETRON HYDROCHLORIDE. [Concomitant]
     Active Substance: GRANISETRON HYDROCHLORIDE
  11. MONOAMMONIUM GLYCYRRHIZINATE_GLYCINE_L-CYSTEINE COMBINED [Concomitant]
  12. METHYLPREDNISOLONE SODIUM SUCCINATE. [Concomitant]
     Active Substance: METHYLPREDNISOLONE SODIUM SUCCINATE

REACTIONS (1)
  - Sick sinus syndrome [Recovered/Resolved]
